FAERS Safety Report 9158383 (Version 3)
Quarter: 2013Q2

REPORT INFORMATION
  Report Type: Spontaneous
  Country: DK (occurrence: DK)
  Receive Date: 20130312
  Receipt Date: 20130410
  Transmission Date: 20140414
  Serious: Yes (Hospitalization, Other)
  Sender: FDA-Public Use
  Company Number: DK-ABBOTT-13P-044-1060417-00

PATIENT
  Sex: Male

DRUGS (2)
  1. HUMIRA [Suspect]
     Indication: PSORIASIS
     Dates: start: 20081128
  2. INFLIXIMAB [Suspect]
     Indication: PSORIASIS
     Dates: start: 20071107, end: 20081022

REACTIONS (1)
  - Pancreatic carcinoma [Not Recovered/Not Resolved]
